FAERS Safety Report 18431661 (Version 2)
Quarter: 2021Q1

REPORT INFORMATION
  Report Type: Report from Study
  Country: US (occurrence: US)
  Receive Date: 20201027
  Receipt Date: 20210130
  Transmission Date: 20210419
  Serious: Yes (Other)
  Sender: FDA-Public Use
  Company Number: US-BEIGENE-BGN-2020-000835

PATIENT

DRUGS (1)
  1. BRUKINSA [Suspect]
     Active Substance: ZANUBRUTINIB
     Indication: CHRONIC LYMPHOCYTIC LEUKAEMIA
     Dosage: 160 MILLIGRAM, BID
     Route: 048
     Dates: start: 20200530, end: 20200627

REACTIONS (13)
  - Arthralgia [Unknown]
  - Fatigue [Not Recovered/Not Resolved]
  - Skin infection [Unknown]
  - Off label use [Unknown]
  - Pyrexia [Unknown]
  - Bowel movement irregularity [Unknown]
  - Pneumonia viral [Recovered/Resolved]
  - Rash [Not Recovered/Not Resolved]
  - Varicella [Recovered/Resolved]
  - Acne [Unknown]
  - Faeces soft [Unknown]
  - Contusion [Unknown]
  - Rash pruritic [Unknown]

NARRATIVE: CASE EVENT DATE: 20200501
